FAERS Safety Report 9651405 (Version 1)
Quarter: 2013Q4

REPORT INFORMATION
  Report Type: Spontaneous
  Country: US (occurrence: US)
  Receive Date: 20131029
  Receipt Date: 20131029
  Transmission Date: 20140711
  Serious: No
  Sender: FDA-Public Use
  Company Number: US-009507513-1310USA012642

PATIENT
  Sex: Female

DRUGS (2)
  1. MIRALAX [Suspect]
     Indication: COLON CANCER
     Dosage: 51 G, QD
     Route: 048
  2. MIRALAX [Suspect]
     Dosage: 255 G, QOW
     Route: 048
     Dates: start: 2001

REACTIONS (2)
  - Overdose [Unknown]
  - Off label use [Unknown]
